FAERS Safety Report 10420085 (Version 3)
Quarter: 2014Q4

REPORT INFORMATION
  Report Type: Spontaneous
  Country: FR (occurrence: None)
  Receive Date: 20140828
  Receipt Date: 20141022
  Transmission Date: 20150528
  Serious: Yes (Hospitalization)
  Sender: FDA-Public Use
  Company Number: AXC-2014-000528

PATIENT
  Age: 78 Year
  Sex: Male

DRUGS (3)
  1. PYLERA [Suspect]
     Active Substance: BISMUTH SUBCITRATE POTASSIUM\METRONIDAZOLE\TETRACYCLINE HYDROCHLORIDE
     Indication: HELICOBACTER INFECTION
     Dosage: QID (12/DAY)
     Route: 048
     Dates: start: 20140805, end: 20140813
  2. NOVONORM (REPAGLINDE) [Concomitant]
  3. OMEPRAZOLE. [Concomitant]
     Active Substance: OMEPRAZOLE

REACTIONS (7)
  - Vomiting [None]
  - Toxic encephalopathy [None]
  - Headache [None]
  - Fatigue [None]
  - Hypokinesia [None]
  - Hypersomnia [None]
  - Mobility decreased [None]

NARRATIVE: CASE EVENT DATE: 20140809
